FAERS Safety Report 20913222 (Version 1)
Quarter: 2022Q2

REPORT INFORMATION
  Report Type: Spontaneous
  Country: US (occurrence: US)
  Receive Date: 20220603
  Receipt Date: 20220603
  Transmission Date: 20220720
  Serious: No
  Sender: FDA-Public Use
  Company Number: US-BRAINTREE LABORATORIES, INC.-2022BTE00365

PATIENT
  Age: 50 Year
  Sex: Female
  Weight: 89.358 kg

DRUGS (4)
  1. SUTAB [Suspect]
     Active Substance: MAGNESIUM SULFATE\POTASSIUM CHLORIDE\SODIUM SULFATE
     Indication: Colonoscopy
     Dosage: 1 X 12 TABLETS, 1X
     Route: 048
     Dates: start: 20220501
  2. TRULANCE [Concomitant]
     Active Substance: PLECANATIDE
  3. NAPROXEN [Concomitant]
     Active Substance: NAPROXEN
  4. UNSPECIFIED INGREDIENT [Concomitant]
     Active Substance: UNSPECIFIED INGREDIENT

REACTIONS (1)
  - Vomiting [Not Recovered/Not Resolved]

NARRATIVE: CASE EVENT DATE: 20220501
